FAERS Safety Report 8436775-4 (Version None)
Quarter: 2012Q2

REPORT INFORMATION
  Report Type: 
  Country: None (occurrence: None)
  Receive Date: 20120614
  Receipt Date: 20120604
  Transmission Date: 20120825
  Serious: Yes (Death)
  Sender: FDA-Public Use
  Company Number: JP-SANOFI-AVENTIS-2011SA077443

PATIENT
  Age: 71 Year
  Sex: Female
  Weight: 35 kg

DRUGS (10)
  1. ANTINEOPLASTIC AGENTS [Concomitant]
  2. OMEPRAZOLE [Concomitant]
     Indication: PROPHYLAXIS
     Route: 048
     Dates: start: 20110125
  3. REBAMIPIDE [Concomitant]
     Route: 048
     Dates: start: 20101228
  4. ZOMETA [Concomitant]
     Indication: BONE LESION
     Dates: start: 20111028
  5. MAGLAX [Concomitant]
     Indication: CONSTIPATION
     Route: 048
     Dates: start: 20101228
  6. THERAPEUTIC RADIOPHARMACEUTICALS [Concomitant]
  7. VITAMIN B12 [Concomitant]
     Route: 048
     Dates: start: 20110125
  8. LOXOPROFEN [Concomitant]
     Indication: PAIN MANAGEMENT
     Route: 048
     Dates: start: 20101228
  9. DOCETAXEL [Suspect]
     Indication: CHEMOTHERAPY
     Dosage: 80 MG/4 ML
     Route: 042
     Dates: start: 20111028, end: 20111028
  10. MUCOSOLVAN [Concomitant]
     Route: 048
     Dates: start: 20101228

REACTIONS (4)
  - INTERSTITIAL LUNG DISEASE [None]
  - RESPIRATORY FAILURE [None]
  - DYSPNOEA [None]
  - PYREXIA [None]
